FAERS Safety Report 25779093 (Version 1)
Quarter: 2025Q3

REPORT INFORMATION
  Report Type: Spontaneous
  Country: CA (occurrence: CA)
  Receive Date: 20250909
  Receipt Date: 20250909
  Transmission Date: 20251020
  Serious: Yes (Life-Threatening, Hospitalization, Other)
  Sender: PFIZER
  Company Number: CA-PFIZER INC-202500177696

PATIENT
  Age: 68 Year
  Sex: Female
  Weight: 128 kg

DRUGS (27)
  1. METHOTREXATE SODIUM [Suspect]
     Active Substance: METHOTREXATE SODIUM
     Indication: Rheumatoid arthritis
     Dosage: 15 MG, WEEKLY (1 EVERY 1 WEEKS)
     Route: 048
  2. AMIODARONE [Concomitant]
     Active Substance: AMIODARONE
  3. BISOPROLOL [Concomitant]
     Active Substance: BISOPROLOL
     Route: 065
  4. CALCIUM/VITAMIN D NOS [Concomitant]
  5. CEFTAZIDIME [Concomitant]
     Active Substance: CEFTAZIDIME
  6. DEXILANT [Concomitant]
     Active Substance: DEXLANSOPRAZOLE
  7. DOXYCYCLINE [Concomitant]
     Active Substance: DOXYCYCLINE
  8. DULOXETINE [Concomitant]
     Active Substance: DULOXETINE
     Route: 048
  9. ELIQUIS [Concomitant]
     Active Substance: APIXABAN
  10. FLUTICASONE [Concomitant]
     Active Substance: FLUTICASONE
  11. FOLIC ACID [Concomitant]
     Active Substance: FOLIC ACID
  12. FUROSEMIDE [Concomitant]
     Active Substance: FUROSEMIDE
  13. HYDROMORPHONE [Concomitant]
     Active Substance: HYDROMORPHONE
  14. LEVOFLOXACIN [Concomitant]
     Active Substance: LEVOFLOXACIN
  15. LEVOTHYROXINE [Concomitant]
     Active Substance: LEVOTHYROXINE
  16. LORAZEPAM [Concomitant]
     Active Substance: LORAZEPAM
     Route: 065
  17. MELOXICAM [Concomitant]
     Active Substance: MELOXICAM
  18. METFORMIN [Concomitant]
     Active Substance: METFORMIN HYDROCHLORIDE
  19. METOCLOPRAMIDE [Concomitant]
     Active Substance: METOCLOPRAMIDE
  20. MONTELUKAST [Concomitant]
     Active Substance: MONTELUKAST
  21. POLYETHYLENE GLYCOLS [Concomitant]
     Active Substance: POLYETHYLENE GLYCOLS
  22. PREGABALIN [Concomitant]
     Active Substance: PREGABALIN
  23. ALBUTEROL [Concomitant]
     Active Substance: ALBUTEROL
     Route: 042
  24. SPIRONOLACTONE [Concomitant]
     Active Substance: SPIRONOLACTONE
  25. TRELEGY ELLIPTA [Concomitant]
     Active Substance: FLUTICASONE FUROATE\UMECLIDINIUM BROMIDE\VILANTEROL TRIFENATATE
     Route: 065
  26. VENLAFAXINE HYDROCHLORIDE [Concomitant]
     Active Substance: VENLAFAXINE HYDROCHLORIDE
  27. ZINC [Concomitant]
     Active Substance: ZINC

REACTIONS (4)
  - Hepatic encephalopathy [Not Recovered/Not Resolved]
  - Acute kidney injury [Not Recovered/Not Resolved]
  - Pancytopenia [Not Recovered/Not Resolved]
  - Stomatitis [Not Recovered/Not Resolved]
